FAERS Safety Report 5933752-X (Version None)
Quarter: 2008Q4

REPORT INFORMATION
  Report Type: 
  Country: None (occurrence: None)
  Receive Date: 20081024
  Receipt Date: 20081014
  Transmission Date: 20090506
  Serious: Yes (Hospitalization)
  Sender: FDA-Public Use
  Company Number: 100#03#2008-05144

PATIENT
  Age: 49 Year

DRUGS (3)
  1. CARBOPLATIN [Suspect]
     Indication: DRUG USE FOR UNKNOWN INDICATION
     Dosage: 470; INTRAVENOUS (NOT OTHERWISE SPECIFIED)
     Route: 042
     Dates: start: 20080925, end: 20080925
  2. CARBOPLATIN [Concomitant]
  3. LORAZEPAM [Concomitant]

REACTIONS (4)
  - CHEST PAIN [None]
  - HOT FLUSH [None]
  - PALPITATIONS [None]
  - PRURITUS [None]
